FAERS Safety Report 14962590 (Version 1)
Quarter: 2018Q2

REPORT INFORMATION
  Report Type: Spontaneous
  Country: US (occurrence: US)
  Receive Date: 20180601
  Receipt Date: 20180601
  Transmission Date: 20180711
  Serious: No
  Sender: FDA-Public Use
  Company Number: US-PFIZER INC-2018224485

PATIENT

DRUGS (1)
  1. ADVIL PM [Suspect]
     Active Substance: DIPHENHYDRAMINE CITRATE\IBUPROFEN
     Indication: BACK PAIN
     Dosage: 800 MG (4 ADVIL PM)

REACTIONS (4)
  - Somnolence [Unknown]
  - Nausea [Unknown]
  - Intentional overdose [Unknown]
  - Dizziness [Unknown]

NARRATIVE: CASE EVENT DATE: 2018
